FAERS Safety Report 7422920-6 (Version None)
Quarter: 2011Q2

REPORT INFORMATION
  Report Type: 
  Country: None (occurrence: None)
  Receive Date: 20110414
  Receipt Date: 20110414
  Transmission Date: 20111010
  Serious: Yes (Hospitalization, Disabling)
  Sender: FDA-Public Use
  Company Number: None

PATIENT
  Age: 77 Year
  Sex: Male
  Weight: 124 kg

DRUGS (14)
  1. ASCORBIC ACID - VITAMIN C- [Concomitant]
  2. CALCIUM CARBONATE-CHOLECALCIFEROL -D3- -CALTRATE-600 PLUS VITAMIN D3- [Concomitant]
  3. FERROUS SULFATE TAB [Concomitant]
  4. DIPHENHYDRAMINE -BENADRYL- [Concomitant]
  5. FENOFIBRATE [Concomitant]
  6. INSULIN NPH HUMAN RECOMBINANT -HUMULIN N- [Concomitant]
  7. COLCHICINE [Concomitant]
  8. FUROSEMIDE 40 MG UNKNOWN [Suspect]
     Indication: CARDIAC FAILURE CONGESTIVE
     Dosage: 40 MG DAILY PO
     Route: 048
     Dates: start: 20110125, end: 20110131
  9. FUROSEMIDE 40 MG UNKNOWN [Suspect]
     Indication: FLUID RETENTION
     Dosage: 40 MG DAILY PO
     Route: 048
     Dates: start: 20110125, end: 20110131
  10. ALLOPURINOL [Concomitant]
  11. ASPIRIN [Concomitant]
  12. INSULIN REGULAR HUMAN -HUMULIN R- [Concomitant]
  13. COREG [Concomitant]
  14. CLOBETASOL PROPIONATE [Concomitant]

REACTIONS (2)
  - SKIN EXFOLIATION [None]
  - DRUG HYPERSENSITIVITY [None]
